FAERS Safety Report 7775520-2 (Version None)
Quarter: 2011Q3

REPORT INFORMATION
  Report Type: 
  Country: None (occurrence: None)
  Receive Date: 20110923
  Receipt Date: 20110922
  Transmission Date: 20111222
  Serious: Yes (Hospitalization)
  Sender: FDA-Public Use
  Company Number: IT-ROCHE-804238

PATIENT

DRUGS (1)
  1. TRASTUZUMAB [Suspect]
     Route: 042
     Dates: start: 20110418, end: 20110725

REACTIONS (4)
  - INTESTINAL OBSTRUCTION [None]
  - ANAEMIA [None]
  - ABDOMINAL ADHESIONS [None]
  - PERITONEAL HAEMORRHAGE [None]
